FAERS Safety Report 18393844 (Version 3)
Quarter: 2021Q3

REPORT INFORMATION
  Report Type: Report from Study
  Country: CA (occurrence: CA)
  Receive Date: 20201016
  Receipt Date: 20210813
  Transmission Date: 20211014
  Serious: Yes (Hospitalization, Disabling)
  Sender: FDA-Public Use
  Company Number: CA-ASTRAZENECA-2020SF31879

PATIENT
  Age: 22725 Day
  Sex: Female

DRUGS (11)
  1. ALVESCO [Concomitant]
     Active Substance: CICLESONIDE
  2. NASONEX [Concomitant]
     Active Substance: MOMETASONE FUROATE
  3. TUDORZA [Concomitant]
     Active Substance: ACLIDINIUM BROMIDE
     Dosage: 400.0UG UNKNOWN
  4. OXEZE [Concomitant]
     Active Substance: FORMOTEROL FUMARATE
  5. ZENHALE 200MCG/5 MCG [Concomitant]
  6. SPRIRIVA RESPIMAT [Concomitant]
  7. VENTOLIN [Concomitant]
     Active Substance: ALBUTEROL SULFATE
     Dosage: 200.0UG UNKNOWN
  8. SINGULAIR [Concomitant]
     Active Substance: MONTELUKAST SODIUM
     Dosage: 10.0MG UNKNOWN
  9. SYMBICORT [Concomitant]
     Active Substance: BUDESONIDE\FORMOTEROL FUMARATE DIHYDRATE
  10. VENTOLIN NEBULE [Concomitant]
  11. FASENRA [Suspect]
     Active Substance: BENRALIZUMAB
     Indication: ASTHMA
     Dosage: 30.0MG UNKNOWN
     Route: 058
     Dates: start: 20200910

REACTIONS (6)
  - Asthma [Not Recovered/Not Resolved]
  - Chest pain [Recovered/Resolved]
  - Stress [Unknown]
  - Respiratory distress [Recovered/Resolved]
  - Drug ineffective [Unknown]
  - Loss of personal independence in daily activities [Unknown]

NARRATIVE: CASE EVENT DATE: 20201008
